FAERS Safety Report 25350024 (Version 1)
Quarter: 2025Q2

REPORT INFORMATION
  Report Type: Other
  Country: US (occurrence: US)
  Receive Date: 20250523
  Receipt Date: 20250523
  Transmission Date: 20250717
  Serious: Yes (Hospitalization, Other)
  Sender: ALVOGEN
  Company Number: US-ALVOGEN-2025098039

PATIENT
  Age: 63 Year
  Sex: Male

DRUGS (3)
  1. FENTANYL [Suspect]
     Active Substance: FENTANYL
     Indication: Product used for unknown indication
  2. COCAINE [Suspect]
     Active Substance: COCAINE
     Indication: Product used for unknown indication
  3. DIPHENHYDRAMINE [Suspect]
     Active Substance: DIPHENHYDRAMINE
     Indication: Product used for unknown indication

REACTIONS (8)
  - Unresponsive to stimuli [Recovering/Resolving]
  - Subdural haematoma [Unknown]
  - Sinus bradycardia [Unknown]
  - Lethargy [Unknown]
  - Drug use disorder [Unknown]
  - Muscle spasms [Unknown]
  - Overdose [Unknown]
  - Adulterated product [Unknown]
